FAERS Safety Report 4906791-5 (Version None)
Quarter: 2006Q1

REPORT INFORMATION
  Report Type: 
  Country: None (occurrence: None)
  Receive Date: 20060207
  Receipt Date: 20060123
  Transmission Date: 20060701
  Serious: Yes (Other)
  Sender: FDA-Public Use
  Company Number: GB200601003808

PATIENT
  Age: 56 Year
  Sex: Female
  Weight: 70 kg

DRUGS (6)
  1. OLANZAPINE [Suspect]
     Indication: PSYCHOTIC DISORDER
     Dosage: 10 MG, ORAL
     Route: 048
     Dates: start: 20051101, end: 20060103
  2. FUROSEMIDE [Concomitant]
  3. BISOPROLOL (BISOPROLOL) [Concomitant]
  4. PERINODOPRIL (PERINDOPRIL) [Concomitant]
  5. ROSUVASTATIN (ROSUVASTATIN) [Concomitant]
  6. DEPAKOTE [Concomitant]

REACTIONS (1)
  - HYPOTHYROIDISM [None]
